FAERS Safety Report 5641240-3 (Version None)
Quarter: 2008Q1

REPORT INFORMATION
  Report Type: 
  Country: None (occurrence: None)
  Receive Date: 20080227
  Receipt Date: 20070404
  Transmission Date: 20080703
  Serious: No
  Sender: FDA-Public Use
  Company Number: A0645732A

PATIENT
  Age: 38 Year
  Sex: Male

DRUGS (1)
  1. NICORETTE [Suspect]
     Dates: start: 20070402, end: 20070402

REACTIONS (3)
  - DYSGEUSIA [None]
  - DYSPEPSIA [None]
  - NAUSEA [None]
